FAERS Safety Report 5575086-1 (Version None)
Quarter: 2007Q4

REPORT INFORMATION
  Report Type: 
  Country: None (occurrence: None)
  Receive Date: 20071130
  Receipt Date: 20070919
  Transmission Date: 20080405
  Serious: No
  Sender: FDA-Public Use
  Company Number: PHEH2007US12643

PATIENT
  Sex: Female

DRUGS (9)
  1. TEKTURNA [Suspect]
     Indication: HYPERTENSION
     Dosage: 150 MG, ONCE/SINGLE, ORAL
     Route: 048
     Dates: start: 20070915, end: 20070915
  2. SYNTHROID [Concomitant]
  3. PREMARIN [Concomitant]
  4. COZAAR [Concomitant]
  5. LIPITOR [Concomitant]
  6. GLUCOPHAGE [Concomitant]
  7. GLYBURIDE [Concomitant]
  8. HYDROCODONE BITARTRATE [Concomitant]
  9. ROBAXIN [Concomitant]

REACTIONS (7)
  - DRY THROAT [None]
  - DYSPEPSIA [None]
  - DYSPNOEA [None]
  - EYE DISORDER [None]
  - MUSCULAR WEAKNESS [None]
  - NAUSEA [None]
  - SENSORY DISTURBANCE [None]
